FAERS Safety Report 18164023 (Version 2)
Quarter: 2021Q4

REPORT INFORMATION
  Report Type: Spontaneous
  Country: US (occurrence: US)
  Receive Date: 20200818
  Receipt Date: 20211224
  Transmission Date: 20220303
  Serious: No
  Sender: FDA-Public Use
  Company Number: US-BIOCODEX2-202001048

PATIENT

DRUGS (3)
  1. DIACOMIT [Suspect]
     Active Substance: STIRIPENTOL
     Indication: Product used for unknown indication
     Dosage: AT 500MG TWICE DAILY
     Route: 065
     Dates: start: 20200611
  2. DIACOMIT [Suspect]
     Active Substance: STIRIPENTOL
     Dosage: AT 250 MG TWICE DAILY
     Route: 065
     Dates: start: 20200804
  3. CLOBAZAM [Concomitant]
     Active Substance: CLOBAZAM
     Indication: Product used for unknown indication
     Route: 065

REACTIONS (3)
  - Constipation [Unknown]
  - Decreased appetite [Recovered/Resolved]
  - Fatigue [Unknown]
